FAERS Safety Report 7299789-6 (Version None)
Quarter: 2011Q1

REPORT INFORMATION
  Report Type: 
  Country: None (occurrence: None)
  Receive Date: 20110209
  Receipt Date: 20110126
  Transmission Date: 20110831
  Serious: Yes (Other)
  Sender: FDA-Public Use
  Company Number: 011199

PATIENT
  Age: 7 Year
  Sex: Female

DRUGS (6)
  1. MELPHALAN HYDROCHLORIDE [Concomitant]
  2. CYCLOSPORINE [Concomitant]
  3. ACYCLOVIR [Concomitant]
  4. METHYLPREDNISOLONE [Concomitant]
  5. HEPARIN [Concomitant]
  6. BUSULFAN [Suspect]
     Indication: CORD BLOOD TRANSPLANT THERAPY
     Dosage: 4 MG/KG

REACTIONS (7)
  - PYREXIA [None]
  - STOMATITIS [None]
  - CHRONIC GRAFT VERSUS HOST DISEASE [None]
  - ACUTE GRAFT VERSUS HOST DISEASE [None]
  - ACUTE GRAFT VERSUS HOST DISEASE IN SKIN [None]
  - DEPRESSION [None]
  - NEUTROPENIA [None]
